FAERS Safety Report 7153792-5 (Version None)
Quarter: 2010Q4

REPORT INFORMATION
  Report Type: 
  Country: None (occurrence: None)
  Receive Date: 20101130
  Receipt Date: 20101118
  Transmission Date: 20110411
  Serious: Yes (Disabling)
  Sender: FDA-Public Use
  Company Number: 2010-0450

PATIENT
  Age: 51 Year
  Sex: Female
  Weight: 68 kg

DRUGS (3)
  1. DYSPORT [Suspect]
     Indication: OFF LABEL USE
     Dosage: SEE IMAGE
     Route: 030
     Dates: start: 20100121, end: 20100121
  2. DYSPORT [Suspect]
     Indication: SKIN WRINKLING
     Dosage: SEE IMAGE
     Route: 030
     Dates: start: 20100121, end: 20100121
  3. JUVEDERM (HYALURONIC ACID) [Concomitant]

REACTIONS (6)
  - EYE DISORDER [None]
  - EYELID PTOSIS [None]
  - HEADACHE [None]
  - IMPAIRED DRIVING ABILITY [None]
  - INAPPROPRIATE SCHEDULE OF DRUG ADMINISTRATION [None]
  - OCULAR DISCOMFORT [None]
